FAERS Safety Report 7581774-8 (Version None)
Quarter: 2011Q2

REPORT INFORMATION
  Report Type: 
  Country: None (occurrence: None)
  Receive Date: 20110629
  Receipt Date: 20110620
  Transmission Date: 20111010
  Serious: Yes (Other)
  Sender: FDA-Public Use
  Company Number: CA-ELI_LILLY_AND_COMPANY-CA201106005940

PATIENT
  Age: 65 Year
  Sex: Female

DRUGS (10)
  1. VITAMIN D [Concomitant]
  2. DIGESTIVE ENZYMES [Concomitant]
  3. ASPIRIN [Concomitant]
  4. FENTANYL [Concomitant]
  5. PAXIL [Concomitant]
  6. ESTROGENIC SUBSTANCE [Concomitant]
  7. DOCUSATE SODIUM [Concomitant]
  8. FORTEO [Suspect]
     Indication: OSTEOPOROSIS
     Dosage: 20 UG, QD
     Route: 058
     Dates: start: 20101108
  9. LAX-A-DAY [Concomitant]
  10. PRILOSEC [Concomitant]

REACTIONS (5)
  - EYE DISORDER [None]
  - FATIGUE [None]
  - BLOOD IRON DECREASED [None]
  - AMNESIA [None]
  - DIZZINESS [None]
